FAERS Safety Report 4409567-0 (Version None)
Quarter: 2004Q3

REPORT INFORMATION
  Report Type: 
  Country: None (occurrence: None)
  Receive Date: 20040716
  Receipt Date: 20040713
  Transmission Date: 20050211
  Serious: No
  Sender: FDA-Public Use
  Company Number: J200403125

PATIENT
  Age: 70 Year
  Sex: Female

DRUGS (1)
  1. (MYSLEE) ZOLPIDEM TABLET 5MG [Suspect]
     Dosage: UNKNOWN; PO
     Route: 048
     Dates: start: 20021001, end: 20021001

REACTIONS (3)
  - LARGE INTESTINE PERFORATION [None]
  - LIVER DISORDER [None]
  - PERITONITIS [None]
